FAERS Safety Report 5897232-2 (Version None)
Quarter: 2008Q3

REPORT INFORMATION
  Report Type: 
  Country: None (occurrence: None)
  Receive Date: 20080923
  Receipt Date: 20080911
  Transmission Date: 20090109
  Serious: Yes (Death, Hospitalization, Other)
  Sender: FDA-Public Use
  Company Number: 52371

PATIENT
  Age: 20 Year
  Sex: Female

DRUGS (1)
  1. AZATHIOPRINE SODIUM [Suspect]

REACTIONS (11)
  - ABDOMINAL PAIN [None]
  - ACINETOBACTER INFECTION [None]
  - ASCITES [None]
  - BONE MARROW FAILURE [None]
  - CAECITIS [None]
  - COMPUTERISED TOMOGRAM ABNORMAL [None]
  - PANCYTOPENIA [None]
  - PETECHIAE [None]
  - PNEUMONIA [None]
  - PYREXIA [None]
  - SEPTIC SHOCK [None]
